FAERS Safety Report 7561650-7 (Version None)
Quarter: 2011Q2

REPORT INFORMATION
  Report Type: 
  Country: None (occurrence: None)
  Receive Date: 20110621
  Receipt Date: 20110614
  Transmission Date: 20111010
  Serious: Yes (Hospitalization)
  Sender: FDA-Public Use
  Company Number: JP-PFIZER INC-2011130274

PATIENT
  Age: 56 Year
  Sex: Female
  Weight: 49.2 kg

DRUGS (3)
  1. DIPHENHYDRAMINE HYDROCHLORIDE [Concomitant]
     Indication: PROPHYLAXIS
     Dosage: 5 DF, 1X/DAY
     Route: 048
  2. LANSOPRAZOLE [Concomitant]
     Dosage: 30 MG (1 TABLET), 1X/DAY
     Route: 048
     Dates: start: 20110305
  3. TEMSIROLIMUS [Suspect]
     Indication: RENAL CELL CARCINOMA
     Dosage: 25 MG, WEEKLY
     Dates: start: 20110324

REACTIONS (1)
  - LIVER DISORDER [None]
